FAERS Safety Report 18051812 (Version 1)
Quarter: 2020Q3

REPORT INFORMATION
  Report Type: Report from Study
  Country: None (occurrence: US)
  Receive Date: 20200722
  Receipt Date: 20200722
  Transmission Date: 20201103
  Serious: Yes (Death)
  Sender: FDA-Public Use
  Company Number: US-ABBVIE-20K-163-3492578-00

PATIENT
  Age: 54 Year
  Sex: Male

DRUGS (11)
  1. DESONIDE. [Concomitant]
     Active Substance: DESONIDE
     Indication: PRODUCT USED FOR UNKNOWN INDICATION
  2. METOPROLOL TARTRATE. [Concomitant]
     Active Substance: METOPROLOL TARTRATE
     Indication: PRODUCT USED FOR UNKNOWN INDICATION
  3. PRILOSEC [Concomitant]
     Active Substance: OMEPRAZOLE MAGNESIUM
     Indication: PRODUCT USED FOR UNKNOWN INDICATION
  4. ZYRTEC [Concomitant]
     Active Substance: CETIRIZINE HYDROCHLORIDE
     Indication: PRODUCT USED FOR UNKNOWN INDICATION
  5. IMBRUVICA [Suspect]
     Active Substance: IBRUTINIB
     Indication: PLASMA CELL MYELOMA
     Route: 048
  6. DEXAMETHASONE. [Concomitant]
     Active Substance: DEXAMETHASONE
     Indication: PRODUCT USED FOR UNKNOWN INDICATION
  7. NINLARO [Concomitant]
     Active Substance: IXAZOMIB CITRATE
     Indication: PRODUCT USED FOR UNKNOWN INDICATION
  8. BACTRIM DS [Concomitant]
     Active Substance: SULFAMETHOXAZOLE\TRIMETHOPRIM
     Indication: PRODUCT USED FOR UNKNOWN INDICATION
  9. NOXAFIL [Concomitant]
     Active Substance: POSACONAZOLE
     Indication: PRODUCT USED FOR UNKNOWN INDICATION
  10. OXYCODONE HYDROCHLORIDE. [Concomitant]
     Active Substance: OXYCODONE HYDROCHLORIDE
     Indication: PRODUCT USED FOR UNKNOWN INDICATION
  11. ACYCLOVIR. [Concomitant]
     Active Substance: ACYCLOVIR
     Indication: PRODUCT USED FOR UNKNOWN INDICATION

REACTIONS (1)
  - Death [Fatal]

NARRATIVE: CASE EVENT DATE: 20200615
